FAERS Safety Report 4969289-4 (Version None)
Quarter: 2006Q2

REPORT INFORMATION
  Report Type: 
  Country: None (occurrence: None)
  Receive Date: 20060411
  Receipt Date: 20050707
  Transmission Date: 20061013
  Serious: Yes (Other)
  Sender: FDA-Public Use
  Company Number: GB-ROCHE-410309

PATIENT
  Age: 18 Year
  Sex: Male
  Weight: 84 kg

DRUGS (2)
  1. ROACCUTANE [Suspect]
     Indication: ACNE
     Dosage: DOSAGE REPORTED AS 40 MG ONCE DAILY (OD) X 4/52, THEN 70 MG ONCE DAILY (OD) X 18/52.
     Route: 048
     Dates: start: 20020923, end: 20030215
  2. ROACCUTANE [Suspect]
     Route: 048
     Dates: start: 20030630, end: 20040215

REACTIONS (5)
  - ACCIDENT [None]
  - DEPRESSION [None]
  - DRUG ABUSER [None]
  - INTENTIONAL SELF-INJURY [None]
  - OVERDOSE [None]
